FAERS Safety Report 7395062-6 (Version None)
Quarter: 2011Q2

REPORT INFORMATION
  Report Type: 
  Country: None (occurrence: None)
  Receive Date: 20110405
  Receipt Date: 20110331
  Transmission Date: 20111010
  Serious: Yes (Hospitalization)
  Sender: FDA-Public Use
  Company Number: US-MERCK-1103USA02352

PATIENT
  Age: 60 Year
  Sex: Male
  Weight: 91 kg

DRUGS (4)
  1. SITAGLIPTIN PHOSPHATE [Suspect]
     Indication: TYPE 2 DIABETES MELLITUS
     Route: 048
     Dates: end: 20110101
  2. LIPITOR [Concomitant]
     Indication: DYSLIPIDAEMIA
     Route: 065
  3. METFORMIN [Concomitant]
     Indication: DIABETES MELLITUS
     Route: 065
  4. LANTUS [Concomitant]
     Indication: DIABETES MELLITUS
     Route: 065

REACTIONS (3)
  - PANCREATITIS ACUTE [None]
  - PANCREATIC PSEUDOCYST [None]
  - RENAL FAILURE ACUTE [None]
